FAERS Safety Report 17411316 (Version 3)
Quarter: 2020Q3

REPORT INFORMATION
  Report Type: Report from Study
  Country: US (occurrence: US)
  Receive Date: 20200212
  Receipt Date: 20200701
  Transmission Date: 20201102
  Serious: Yes (Hospitalization, Other)
  Sender: FDA-Public Use
  Company Number: US-009507513-1708USA001675

PATIENT
  Age: 64 Year
  Sex: Female

DRUGS (24)
  1. XGEVA [Suspect]
     Active Substance: DENOSUMAB
     Indication: BONE CANCER
     Dosage: UNK
     Dates: start: 20190228
  2. XTAMPZA [Suspect]
     Active Substance: OXYCODONE
     Dosage: UNK
  3. YERVOY [Suspect]
     Active Substance: IPILIMUMAB
     Dosage: UNK
     Dates: start: 20200618
  4. PEMBROLIZUMAB. [Suspect]
     Active Substance: PEMBROLIZUMAB
     Indication: NON-SMALL CELL LUNG CANCER STAGE III
     Dosage: CONCENTRATION: 100 MG, EVERY 3 WEEKS
     Route: 042
     Dates: start: 20170615, end: 201711
  5. PEMBROLIZUMAB. [Interacting]
     Active Substance: PEMBROLIZUMAB
     Dosage: UNK, Q3W
     Route: 042
     Dates: start: 2017
  6. OXYCONTIN [Suspect]
     Active Substance: OXYCODONE HYDROCHLORIDE
     Dosage: 20 MILLIGRAM, TWICE A DAY
  7. ATIVAN [Concomitant]
     Active Substance: LORAZEPAM
     Dosage: UNK
  8. ZOMETA [Suspect]
     Active Substance: ZOLEDRONIC ACID
     Dosage: UNK
  9. INLYTA [Suspect]
     Active Substance: AXITINIB
     Indication: RENAL CELL CARCINOMA
     Dosage: 5 MILLIGRAM TWICE A DAY
     Dates: start: 20191101
  10. INLYTA [Suspect]
     Active Substance: AXITINIB
     Dosage: 10 MG TWICE A DAY
     Dates: start: 202001, end: 202002
  11. ASPIRIN. [Concomitant]
     Active Substance: ASPIRIN
     Dosage: 325 MG ^3 A DAY^
  12. INLYTA [Suspect]
     Active Substance: AXITINIB
     Dosage: 5 MG TWICE DAILY
     Dates: start: 202002, end: 202005
  13. NORCO [Concomitant]
     Active Substance: ACETAMINOPHEN\HYDROCODONE BITARTRATE
     Dosage: UNK
  14. OPDIVO [Suspect]
     Active Substance: NIVOLUMAB
     Dosage: UNK
     Dates: start: 20200618
  15. OXYCONTIN [Suspect]
     Active Substance: OXYCODONE HYDROCHLORIDE
     Dosage: 5 MG, UNK
  16. XGEVA [Suspect]
     Active Substance: DENOSUMAB
     Dosage: INJECTION
     Dates: start: 20190328
  17. HYDROMET (HOMATROPINE METHYLBROMIDE (+) HYDROCODONE BITARTRATE) [Concomitant]
     Indication: PAIN
     Dosage: UNK
  18. AMLODIPINE [Concomitant]
     Active Substance: AMLODIPINE BESYLATE
     Indication: BLOOD PRESSURE SYSTOLIC INCREASED
     Dosage: UNK, AS NEEDED WHEN SYSTOLIC BLOOD PRESSURE IS OVER 140
  19. BENTYL [Concomitant]
     Active Substance: DICYCLOMINE HYDROCHLORIDE
     Indication: MIGRAINE
     Dosage: 10 MG, 3 PILLS A DAY (ALSO REPORTED AS 3 OR 4 A DA)
  20. FIORICET [Concomitant]
     Active Substance: ACETAMINOPHEN\BUTALBITAL\CAFFEINE
     Indication: MIGRAINE
     Dosage: 2 DAILY
  21. ROBAXIN [Concomitant]
     Active Substance: METHOCARBAMOL
     Indication: MIGRAINE
     Dosage: 500 MIG, 3 TIMES A DAY
  22. OXYCONTIN [Suspect]
     Active Substance: OXYCODONE HYDROCHLORIDE
     Dosage: 10 MILLIGRAM, TWICE A DAY
  23. PEMBROLIZUMAB. [Interacting]
     Active Substance: PEMBROLIZUMAB
     Dosage: EVERY 3 WEEKS
     Route: 042
     Dates: start: 201803, end: 20200514
  24. ROBAXIN [Concomitant]
     Active Substance: METHOCARBAMOL
     Dosage: 750 MG ^2 OR 3^ A DAY

REACTIONS (78)
  - Neoplasm malignant [Unknown]
  - Pulmonary vein occlusion [Unknown]
  - Cancer pain [Unknown]
  - Pulmonary embolism [Unknown]
  - Blood test abnormal [Unknown]
  - Pubic pain [Unknown]
  - Pelvic pain [Recovering/Resolving]
  - Anxiety [Unknown]
  - Cold sweat [Unknown]
  - Decreased appetite [Unknown]
  - Pelvic fracture [Unknown]
  - Lip exfoliation [Unknown]
  - Depressed mood [Unknown]
  - Vitamin D deficiency [Unknown]
  - Oral mucosal blistering [Unknown]
  - Feeling abnormal [Unknown]
  - Anosmia [Unknown]
  - Cough [Unknown]
  - Emotional disorder [Unknown]
  - Road traffic accident [Unknown]
  - Bone pain [Not Recovered/Not Resolved]
  - Tooth disorder [Unknown]
  - Mobility decreased [Unknown]
  - Alopecia [Not Recovered/Not Resolved]
  - Adverse event [Unknown]
  - Vomiting [Unknown]
  - Depressed mood [Unknown]
  - Lip erythema [Unknown]
  - Calcium deficiency [Recovered/Resolved]
  - Sensation of blood flow [Unknown]
  - Pain [Unknown]
  - Pain in extremity [Not Recovered/Not Resolved]
  - Adverse event [Not Recovered/Not Resolved]
  - Fatigue [Unknown]
  - Weight decreased [Unknown]
  - Emphysema [Unknown]
  - Pulmonary artery occlusion [Unknown]
  - Bone disorder [Unknown]
  - Lymphadenopathy [Unknown]
  - Drug ineffective [Unknown]
  - Stress [Unknown]
  - Peripheral swelling [Unknown]
  - Arthralgia [Not Recovered/Not Resolved]
  - Inappropriate schedule of product administration [Unknown]
  - Hemiparesis [Unknown]
  - Pelvic fracture [Unknown]
  - Cancer pain [Recovered/Resolved]
  - Skin abrasion [Unknown]
  - Spinal disorder [Unknown]
  - Lip swelling [Unknown]
  - Anxiety [Unknown]
  - Malaise [Unknown]
  - Influenza like illness [Unknown]
  - Pain [Recovered/Resolved]
  - Insomnia [Unknown]
  - Dizziness [Unknown]
  - Nausea [Unknown]
  - Asthenia [Unknown]
  - Malaise [Unknown]
  - Tumour haemorrhage [Unknown]
  - Depression [Unknown]
  - Pulmonary pain [Recovered/Resolved]
  - Ageusia [Unknown]
  - Potentiating drug interaction [Unknown]
  - Palpitations [Unknown]
  - Malaise [Unknown]
  - Blood pressure increased [Unknown]
  - Back pain [Unknown]
  - Malignant neoplasm progression [Unknown]
  - Chapped lips [Unknown]
  - Drug ineffective [Recovered/Resolved]
  - Migraine [Unknown]
  - Blood calcium increased [Unknown]
  - Blood pressure increased [Recovered/Resolved]
  - Pain [Unknown]
  - Adverse event [Unknown]
  - Dyspnoea [Unknown]
  - Condition aggravated [Unknown]

NARRATIVE: CASE EVENT DATE: 2017
